FAERS Safety Report 8900842 (Version 2)
Quarter: 2013Q1

REPORT INFORMATION
  Report Type: Spontaneous
  Country: DE (occurrence: DE)
  Receive Date: 20121109
  Receipt Date: 20130206
  Transmission Date: 20140127
  Serious: Yes (Hospitalization, Disabling)
  Sender: FDA-Public Use
  Company Number: DE-JNJFOC-20121103320

PATIENT
  Age: 85 Year
  Sex: Female

DRUGS (4)
  1. XARELTO [Suspect]
     Indication: CEREBROVASCULAR ACCIDENT PROPHYLAXIS
     Route: 048
     Dates: start: 20120213
  2. XARELTO [Suspect]
     Indication: ATRIAL FIBRILLATION
     Route: 048
     Dates: start: 20120213
  3. BLOPRESS [Concomitant]
     Indication: HYPERTENSION
     Route: 065
  4. BELOC ZOK [Concomitant]
     Indication: HYPERTENSION
     Route: 065

REACTIONS (2)
  - Cerebral infarction [Not Recovered/Not Resolved]
  - Drug ineffective [Unknown]
